FAERS Safety Report 12584156 (Version 4)
Quarter: 2017Q1

REPORT INFORMATION
  Report Type: Report from Study
  Country: US (occurrence: US)
  Receive Date: 20160722
  Receipt Date: 20170223
  Transmission Date: 20170428
  Serious: Yes (Hospitalization)
  Sender: FDA-Public Use
  Company Number: US-AMGEN-USASL2016093646

PATIENT
  Sex: Female

DRUGS (1)
  1. ENBREL [Suspect]
     Active Substance: ETANERCEPT
     Indication: RHEUMATOID ARTHRITIS
     Dosage: 50 MG, QWK
     Route: 065
     Dates: start: 20160526, end: 201610

REACTIONS (4)
  - Ulcer [Unknown]
  - Hip fracture [Unknown]
  - Impaired healing [Unknown]
  - Anaemia [Unknown]

NARRATIVE: CASE EVENT DATE: 2016
